FAERS Safety Report 23806703 (Version 1)
Quarter: 2024Q2

REPORT INFORMATION
  Report Type: Spontaneous
  Country: US (occurrence: US)
  Receive Date: 20240502
  Receipt Date: 20240502
  Transmission Date: 20240716
  Serious: No
  Sender: FDA-Public Use
  Company Number: US-LUPIN PHARMACEUTICALS INC.-2024-03474

PATIENT

DRUGS (1)
  1. LEVALBUTEROL TARTRATE [Suspect]
     Active Substance: LEVALBUTEROL TARTRATE
     Indication: Dyspnoea
     Dosage: UNK, QD, 2 PUFFS PER DAY OR AS NEEDED, IF NEEDED MORE ADDITIONAL 2 PUFFS AFTER EVERY 4 TO 6 HOURS

REACTIONS (3)
  - Device delivery system issue [Unknown]
  - Drug dose omission by device [Unknown]
  - No adverse event [Unknown]

NARRATIVE: CASE EVENT DATE: 20240417
